FAERS Safety Report 26197439 (Version 1)
Quarter: 2025Q4

REPORT INFORMATION
  Report Type: Spontaneous
  Country: US (occurrence: US)
  Receive Date: 20251224
  Receipt Date: 20251224
  Transmission Date: 20260117
  Serious: No
  Sender: SANOFI AVENTIS
  Company Number: US-SA-2025SA380769

PATIENT
  Sex: Female
  Weight: 63.5 kg

DRUGS (10)
  1. DUPIXENT [Suspect]
     Active Substance: DUPILUMAB
     Indication: Chronic obstructive pulmonary disease
     Dosage: 300 MG, QOW
     Route: 058
  2. TYLENOL [Concomitant]
     Active Substance: ACETAMINOPHEN
  3. LISINOPRIL [Concomitant]
     Active Substance: LISINOPRIL
  4. ROSUVASTATIN [Concomitant]
     Active Substance: ROSUVASTATIN
  5. DALIRESP [Concomitant]
     Active Substance: ROFLUMILAST
  6. CARVEDILOL [Concomitant]
     Active Substance: CARVEDILOL
  7. ALLOPURINOL [Concomitant]
     Active Substance: ALLOPURINOL
  8. VITAMIN D2 [Concomitant]
     Active Substance: ERGOCALCIFEROL
  9. AMBIEN [Concomitant]
     Active Substance: ZOLPIDEM TARTRATE
  10. AZITHROMYCIN [Concomitant]
     Active Substance: AZITHROMYCIN

REACTIONS (4)
  - Nausea [Unknown]
  - Confusional state [Unknown]
  - Urinary tract infection [Unknown]
  - Vision blurred [Unknown]
